FAERS Safety Report 10507138 (Version 3)
Quarter: 2015Q3

REPORT INFORMATION
  Report Type: Spontaneous
  Country: ES (occurrence: NL)
  Receive Date: 20141009
  Receipt Date: 20150803
  Transmission Date: 20151125
  Serious: Yes (Other)
  Sender: FDA-Public Use
  Company Number: NL-FRI-1000071231

PATIENT
  Age: 66 Year
  Sex: Female

DRUGS (6)
  1. TOPIRAMAAT [Concomitant]
  2. FORADIL [Concomitant]
     Active Substance: FORMOTEROL FUMARATE
  3. ACLIDINIUM [Suspect]
     Active Substance: ACLIDINIUM BROMIDE
     Indication: CHRONIC OBSTRUCTIVE PULMONARY DISEASE
     Dosage: 2 DF
     Route: 055
     Dates: start: 20140724, end: 20140901
  4. SIMVASTATINE [Concomitant]
     Active Substance: SIMVASTATIN
  5. ATROVENT [Concomitant]
     Active Substance: IPRATROPIUM BROMIDE
  6. CLOPIDOGREL [Concomitant]
     Active Substance: CLOPIDOGREL BISULFATE

REACTIONS (1)
  - Transient ischaemic attack [Recovered/Resolved]

NARRATIVE: CASE EVENT DATE: 20140901
